FAERS Safety Report 4945688-1 (Version None)
Quarter: 2006Q1

REPORT INFORMATION
  Report Type: 
  Country: None (occurrence: None)
  Receive Date: 20060117
  Receipt Date: 20050915
  Transmission Date: 20060701
  Serious: Yes (Other)
  Sender: FDA-Public Use
  Company Number: A03200502905

PATIENT
  Sex: Male

DRUGS (4)
  1. PLAVIX [Suspect]
     Indication: STENT PLACEMENT
     Dosage: 75 MG QD - ORAL
     Route: 048
     Dates: start: 20020101, end: 20050913
  2. ESOMEPRAZOLE [Concomitant]
  3. ASPIRIN TAB [Concomitant]
  4. SIMVASTATIN [Concomitant]

REACTIONS (3)
  - GASTROINTESTINAL PAIN [None]
  - GASTROINTESTINAL ULCER PERFORATION [None]
  - GASTROOESOPHAGEAL REFLUX DISEASE [None]
